FAERS Safety Report 5652500-4 (Version None)
Quarter: 2008Q1

REPORT INFORMATION
  Report Type: 
  Country: None (occurrence: None)
  Receive Date: 20080306
  Receipt Date: 20080229
  Transmission Date: 20080703
  Serious: Yes (Life-Threatening)
  Sender: FDA-Public Use
  Company Number: JP-ASTRAZENECA-2008AP01571

PATIENT
  Age: 20 Year
  Sex: Female

DRUGS (2)
  1. ZOMIG [Suspect]
     Indication: MIGRAINE
     Route: 048
     Dates: start: 20070101, end: 20070101
  2. ZOMIG [Suspect]
     Route: 048
     Dates: start: 20080228, end: 20080228

REACTIONS (2)
  - DYSAESTHESIA [None]
  - HYPOTENSION [None]
